FAERS Safety Report 7819503-2 (Version None)
Quarter: 2011Q4

REPORT INFORMATION
  Report Type: 
  Country: None (occurrence: None)
  Receive Date: 20111018
  Receipt Date: 20110111
  Transmission Date: 20120403
  Serious: No
  Sender: FDA-Public Use
  Company Number: US-ASTRAZENECA-2011SE01749

PATIENT
  Age: 46 Year
  Sex: Female
  Weight: 68 kg

DRUGS (4)
  1. NEXIUM [Suspect]
     Route: 048
  2. MOTRIN [Concomitant]
  3. SYMBICORT [Suspect]
     Indication: ASTHMA
     Dosage: 80 MG TWO TIMES A DAY
     Route: 055
     Dates: start: 20110101
  4. CENTRAMINE [Concomitant]

REACTIONS (2)
  - FLUSHING [None]
  - PRURITUS [None]
